FAERS Safety Report 21339435 (Version 1)
Quarter: 2022Q3

REPORT INFORMATION
  Report Type: Spontaneous
  Country: JP (occurrence: JP)
  Receive Date: 20220915
  Receipt Date: 20220915
  Transmission Date: 20221026
  Serious: Yes (Death, Other)
  Sender: FDA-Public Use
  Company Number: JP-JAZZ-2022-JP-029705

PATIENT

DRUGS (1)
  1. DEFITELIO [Suspect]
     Active Substance: DEFIBROTIDE SODIUM
     Indication: Venoocclusive liver disease
     Dosage: 1600 MILLIGRAM/24 HOURS
     Route: 042
     Dates: start: 20220909, end: 20220911

REACTIONS (1)
  - Death [Fatal]

NARRATIVE: CASE EVENT DATE: 20220901
